FAERS Safety Report 7277212-5 (Version None)
Quarter: 2011Q1

REPORT INFORMATION
  Report Type: 
  Country: None (occurrence: None)
  Receive Date: 20110131
  Receipt Date: 20110117
  Transmission Date: 20110831
  Serious: Yes (Hospitalization)
  Sender: FDA-Public Use
  Company Number: 2011000239

PATIENT
  Sex: Male

DRUGS (1)
  1. TARCEVA [Suspect]
     Indication: LUNG ADENOCARCINOMA STAGE IV
     Dosage: (150 MG,QD),ORAL
     Route: 048
     Dates: start: 20090730, end: 20091110

REACTIONS (2)
  - SKIN ULCER [None]
  - ASTHENIA [None]
